FAERS Safety Report 8231605-8 (Version None)
Quarter: 2012Q1

REPORT INFORMATION
  Report Type: 
  Country: None (occurrence: None)
  Receive Date: 20120323
  Receipt Date: 20120313
  Transmission Date: 20120608
  Serious: No
  Sender: FDA-Public Use
  Company Number: US-ELI_LILLY_AND_COMPANY-US201112001385

PATIENT
  Sex: Female

DRUGS (4)
  1. CALCIUM CARBONATE [Concomitant]
  2. FORTEO [Suspect]
     Dosage: 20 UG, QD
     Route: 065
  3. VITAMIN D [Concomitant]
  4. FORTEO [Suspect]
     Indication: OSTEOPOROSIS
     Dosage: 20 UG, QD
     Route: 065
     Dates: start: 20111102

REACTIONS (8)
  - IMPAIRED HEALING [None]
  - DEVICE DISLOCATION [None]
  - FATIGUE [None]
  - BACK PAIN [None]
  - ARTHRALGIA [None]
  - ARTHRITIS [None]
  - COUGH [None]
  - PAIN [None]
